FAERS Safety Report 23173269 (Version 1)
Quarter: 2023Q4

REPORT INFORMATION
  Report Type: Spontaneous
  Country: US (occurrence: US)
  Receive Date: 20231111
  Receipt Date: 20231111
  Transmission Date: 20240109
  Serious: No
  Sender: FDA-Public Use
  Company Number: US-SA-SAC20231109000015

PATIENT
  Age: 79 Year
  Sex: Female

DRUGS (3)
  1. DUPIXENT [Suspect]
     Active Substance: DUPILUMAB
     Indication: Psoriasis
     Dosage: DOSE: 300MG/2ML FREQUENCY: D600P D1 THEN DL300P S15
     Route: 065
     Dates: start: 202308
  2. DUPIXENT [Suspect]
     Active Substance: DUPILUMAB
     Indication: Dermatitis atopic
     Dosage: 300MG/QOW
  3. MINOXIDIL [Concomitant]
     Active Substance: MINOXIDIL
     Dosage: UNK

REACTIONS (2)
  - Nail disorder [Unknown]
  - Product use in unapproved indication [Unknown]

NARRATIVE: CASE EVENT DATE: 20230101
